FAERS Safety Report 9732568 (Version 1)
Quarter: 2013Q4

REPORT INFORMATION
  Report Type: Spontaneous
  Country: US (occurrence: US)
  Receive Date: 20131205
  Receipt Date: 20131205
  Transmission Date: 20140711
  Serious: No
  Sender: FDA-Public Use
  Company Number: US-PFIZER INC-2013345436

PATIENT
  Age: 88 Year
  Sex: Female

DRUGS (4)
  1. CELEBREX [Suspect]
     Indication: ARTHRITIS
     Dosage: UNK, 1X/DAY
  2. CELEBREX [Suspect]
     Indication: PAIN
     Dosage: UNK, EVERY OTHER DAY IN SECOND WEEK
  3. CELEBREX [Suspect]
     Dosage: UNK, 1X/DAY IN THE THIRD WEEK
  4. BABY ASPIRIN [Concomitant]
     Dosage: UNK

REACTIONS (8)
  - Inappropriate schedule of drug administration [Unknown]
  - Drug effect incomplete [Unknown]
  - Gait disturbance [Unknown]
  - Joint swelling [Unknown]
  - Rash [Unknown]
  - Abdominal discomfort [Unknown]
  - Pain in extremity [Unknown]
  - Pruritus [Unknown]
